FAERS Safety Report 19573903 (Version 3)
Quarter: 2021Q3

REPORT INFORMATION
  Report Type: Spontaneous
  Country: EG (occurrence: EG)
  Receive Date: 20210718
  Receipt Date: 20210913
  Transmission Date: 20211014
  Serious: Yes (Life-Threatening)
  Sender: FDA-Public Use
  Company Number: EG-EMERGENT BIOSOLUTIONS CANADA INC.-21000102LT

PATIENT

DRUGS (1)
  1. BAT [Suspect]
     Active Substance: EQUINE BOTULINUM NEUROTOXIN A/B/C/D/E/F/G IMMUNE FAB2
     Indication: BOTULISM
     Dosage: 30 ML/HR
     Dates: start: 20190429, end: 20190429

REACTIONS (2)
  - Anaphylactic reaction [Recovered/Resolved]
  - Cardio-respiratory arrest [Recovered/Resolved]

NARRATIVE: CASE EVENT DATE: 20190429
